FAERS Safety Report 8821528 (Version 1)
Quarter: 2012Q4

REPORT INFORMATION
  Report Type: 
  Country: US (occurrence: US)
  Receive Date: 20121002
  Receipt Date: 20121002
  Transmission Date: 20130627
  Serious: Yes (Other)
  Sender: FDA-Public Use
  Company Number: US-PFIZER INC-2012242703

PATIENT
  Sex: Female

DRUGS (1)
  1. LYRICA [Suspect]
     Dosage: UNK
     Dates: start: 20090901

REACTIONS (5)
  - Paralysis [Unknown]
  - Nervousness [Unknown]
  - Frustration [Unknown]
  - Confusional state [Unknown]
  - Hypokinesia [Unknown]
